FAERS Safety Report 24462583 (Version 2)
Quarter: 2025Q1

REPORT INFORMATION
  Report Type: Spontaneous
  Country: GB (occurrence: GB)
  Receive Date: 20241018
  Receipt Date: 20250110
  Transmission Date: 20250409
  Serious: Yes (Other)
  Sender: RANBAXY
  Company Number: GB-MHRA-TPP32928026C18878350YC1727884229207

PATIENT
  Age: 44 Year
  Sex: Male
  Weight: 90 kg

DRUGS (7)
  1. CITALOPRAM [Suspect]
     Active Substance: CITALOPRAM
     Indication: Ill-defined disorder
     Route: 065
     Dates: start: 20241002
  2. WARFARIN [Concomitant]
     Active Substance: WARFARIN
     Indication: Ill-defined disorder
     Route: 065
     Dates: start: 20230626
  3. CITALOPRAM [Concomitant]
     Active Substance: CITALOPRAM
     Indication: Ill-defined disorder
     Route: 065
     Dates: start: 20240814, end: 20240911
  4. AMOROLFINE [Concomitant]
     Active Substance: AMOROLFINE
     Indication: Ill-defined disorder
     Route: 065
     Dates: start: 20221003
  5. LEVOTHYROXINE [Concomitant]
     Active Substance: LEVOTHYROXINE
     Indication: Ill-defined disorder
     Route: 065
     Dates: start: 20230622
  6. CLOTRIMAZOLE [Concomitant]
     Active Substance: CLOTRIMAZOLE
     Indication: Ill-defined disorder
     Route: 065
     Dates: start: 20240426
  7. FERROUS SULFATE [Concomitant]
     Active Substance: FERROUS SULFATE
     Indication: Ill-defined disorder
     Route: 065
     Dates: start: 20240520

REACTIONS (1)
  - Haematoma muscle [Recovering/Resolving]

NARRATIVE: CASE EVENT DATE: 20241002
